FAERS Safety Report 16484013 (Version 1)
Quarter: 2019Q3

REPORT INFORMATION
  Report Type: Spontaneous
  Country: US (occurrence: US)
  Receive Date: 20190625
  Receipt Date: 20190625
  Transmission Date: 20191004
  Serious: Yes (Other)
  Sender: FDA-Public Use
  Company Number: None

PATIENT
  Age: 42 Year
  Sex: Female
  Weight: 110.34 kg

DRUGS (1)
  1. INLYTA [Suspect]
     Active Substance: AXITINIB
     Indication: RENAL CANCER
     Route: 048
     Dates: start: 20190521

REACTIONS (5)
  - Diarrhoea [None]
  - Pain of skin [None]
  - Skin disorder [None]
  - Nausea [None]
  - Rash [None]

NARRATIVE: CASE EVENT DATE: 20190625
